FAERS Safety Report 9379341 (Version 1)
Quarter: 2013Q2

REPORT INFORMATION
  Report Type: Spontaneous
  Country: US (occurrence: None)
  Receive Date: 20130403
  Receipt Date: 20130403
  Transmission Date: 20140414
  Serious: Yes (Death, Hospitalization)
  Sender: FDA-Public Use
  Company Number: 2013PROUSA02644

PATIENT
  Age: 70 Year
  Sex: Male
  Weight: 101.6 kg

DRUGS (5)
  1. PROVENGE (SIPULEUCEL-T) SUSPENSION [Suspect]
     Indication: PROSTATE CANCER METASTATIC
     Route: 042
     Dates: start: 20121213, end: 20121213
  2. ATENOLOL (ATENOLOL) [Concomitant]
  3. SYNTHROID (LEVOTHYROXINE SODIUM) [Concomitant]
  4. ACCUPRIL (QUINAPRIL HYDROCHLORIDE) [Concomitant]
  5. ASPIRIN (ACETYLSALICYCLIC ACID) [Concomitant]

REACTIONS (1)
  - Hemiparesis [None]
